FAERS Safety Report 7608990-0 (Version None)
Quarter: 2011Q3

REPORT INFORMATION
  Report Type: 
  Country: None (occurrence: None)
  Receive Date: 20110714
  Receipt Date: 20110708
  Transmission Date: 20111222
  Serious: Yes (Death, Hospitalization)
  Sender: FDA-Public Use
  Company Number: GB-CELGENEUS-167-21880-11070862

PATIENT
  Sex: Male

DRUGS (5)
  1. CYCLOPHOSPHAMIDE [Suspect]
     Dosage: 500 MILLIGRAM
     Route: 048
     Dates: start: 20110505, end: 20110614
  2. ZOLEDRONIC ACID [Suspect]
     Route: 065
  3. DEXAMETHASONE [Suspect]
     Dosage: 20 MILLIGRAM
     Route: 048
     Dates: start: 20110505, end: 20110614
  4. REVLIMID [Suspect]
     Dosage: 25 MILLIGRAM
     Route: 048
     Dates: start: 20110505, end: 20110614
  5. ANTIHYPERTENSIVES [Suspect]
     Route: 065

REACTIONS (2)
  - RESPIRATORY FAILURE [None]
  - PNEUMONIA [None]
